FAERS Safety Report 22143656 (Version 1)
Quarter: 2023Q1

REPORT INFORMATION
  Report Type: Spontaneous
  Country: US (occurrence: US)
  Receive Date: 20230327
  Receipt Date: 20230327
  Transmission Date: 20230417
  Serious: No
  Sender: FDA-Public Use
  Company Number: US-BAUSCHBL-2023BNL002364

PATIENT
  Sex: Female

DRUGS (1)
  1. ERYTHROMYCIN [Suspect]
     Active Substance: ERYTHROMYCIN
     Indication: Product used for unknown indication
     Route: 047
     Dates: start: 20230320

REACTIONS (1)
  - Application site pain [Unknown]

NARRATIVE: CASE EVENT DATE: 20230320
